FAERS Safety Report 24843106 (Version 1)
Quarter: 2025Q1

REPORT INFORMATION
  Report Type: Report from Study
  Country: US (occurrence: US)
  Receive Date: 20250115
  Receipt Date: 20250115
  Transmission Date: 20250409
  Serious: No
  Sender: HRA PHARMA
  Company Number: US-ORG100014127-2024000333

PATIENT
  Age: 68 Year
  Sex: Female

DRUGS (18)
  1. LYSODREN [Suspect]
     Active Substance: MITOTANE
     Indication: Adrenal gland cancer
     Dosage: TWO TABLETS BY MOUTH EVERY DAY
     Route: 048
     Dates: start: 20240712
  2. ALBUTEROL AER HFA [Concomitant]
     Indication: Product used for unknown indication
  3. BENZONATATE CAP 200MG [Concomitant]
     Indication: Product used for unknown indication
  4. BETAMETH VAL CRE 0.1% [Concomitant]
     Indication: Product used for unknown indication
  5. BREO ELLIPTA INH 100-25 [Concomitant]
     Indication: Product used for unknown indication
  6. CALCIUM 600 TAB +D [Concomitant]
     Indication: Product used for unknown indication
  7. CLENPIQ SOL [Concomitant]
     Indication: Product used for unknown indication
  8. CLOBETASOL LOT 0.05% [Concomitant]
     Indication: Product used for unknown indication
  9. COMBIVENT AER 20-100 [Concomitant]
     Indication: Product used for unknown indication
  10. FLUTICASONE [Concomitant]
     Active Substance: FLUTICASONE
     Indication: Product used for unknown indication
  11. KETOCONAZOLE SHA 2% [Concomitant]
     Indication: Product used for unknown indication
  12. MELOXICAM [Concomitant]
     Active Substance: MELOXICAM
     Indication: Product used for unknown indication
  13. METHYLPHENID TAB 5MG [Concomitant]
     Indication: Product used for unknown indication
  14. ONDANSETRON [Concomitant]
     Active Substance: ONDANSETRON
     Indication: Product used for unknown indication
  15. SENNOSIDES TAB 8.6MG [Concomitant]
     Indication: Product used for unknown indication
  16. TRAMADOL HCL TAB 50MG [Concomitant]
     Indication: Product used for unknown indication
  17. HYDROCORT TABLET 5MG [Concomitant]
     Indication: Product used for unknown indication
  18. ROSUVASTATIN TABLET 20 MG [Concomitant]
     Indication: Product used for unknown indication

REACTIONS (1)
  - Blood cholesterol abnormal [Not Recovered/Not Resolved]
